FAERS Safety Report 5384084-2 (Version None)
Quarter: 2007Q3

REPORT INFORMATION
  Report Type: 
  Country: None (occurrence: None)
  Receive Date: 20070711
  Receipt Date: 20070702
  Transmission Date: 20080115
  Serious: Yes (Other)
  Sender: FDA-Public Use
  Company Number: US-AVENTIS-200714756US

PATIENT
  Age: 64 Year
  Sex: Female

DRUGS (3)
  1. LANTUS [Suspect]
     Dates: start: 20070401
  2. NOVOLOG [Concomitant]
     Dosage: DOSE: UNK
  3. LEVOTHYROXINE SODIUM [Concomitant]
     Dosage: DOSE: UNK

REACTIONS (5)
  - ASTHENIA [None]
  - BURNING SENSATION [None]
  - FEELING ABNORMAL [None]
  - MONOPLEGIA [None]
  - NEURALGIA [None]
